FAERS Safety Report 7110893-5 (Version None)
Quarter: 2010Q4

REPORT INFORMATION
  Report Type: 
  Country: None (occurrence: None)
  Receive Date: 20101118
  Receipt Date: 20101104
  Transmission Date: 20110411
  Serious: Yes (Hospitalization)
  Sender: FDA-Public Use
  Company Number: DE-CELGENEUS-062-21880-10101783

PATIENT
  Age: 70 Year
  Sex: Male
  Weight: 87 kg

DRUGS (9)
  1. REVLIMID [Suspect]
     Indication: MULTIPLE MYELOMA
     Route: 048
     Dates: start: 20091127, end: 20091211
  2. REVLIMID [Suspect]
     Route: 048
     Dates: start: 20091225, end: 20100103
  3. THALIDOMIDE [Suspect]
     Route: 048
     Dates: end: 20091201
  4. PREDNISOLONE [Suspect]
     Route: 065
     Dates: end: 20091201
  5. MARCUMAR [Concomitant]
     Indication: PROPHYLAXIS
     Route: 065
     Dates: start: 20100101
  6. LEVOFLOXACIN [Concomitant]
     Route: 065
     Dates: end: 20091231
  7. DIGITOXIN [Concomitant]
     Route: 065
  8. ISOPTIN [Concomitant]
     Route: 065
  9. TORASEMIDE [Concomitant]
     Route: 065

REACTIONS (2)
  - GENERAL PHYSICAL HEALTH DETERIORATION [None]
  - PNEUMONIA [None]
